FAERS Safety Report 21852810 (Version 6)
Quarter: 2023Q2

REPORT INFORMATION
  Report Type: Report from Study
  Country: CN (occurrence: CN)
  Receive Date: 20230112
  Receipt Date: 20230621
  Transmission Date: 20230722
  Serious: Yes (Death, Other)
  Sender: FDA-Public Use
  Company Number: CN-TAKEDA-2022TUS026207

PATIENT
  Age: 70 Year
  Sex: Male
  Weight: 69 kg

DRUGS (15)
  1. IXAZOMIB [Suspect]
     Active Substance: IXAZOMIB
     Indication: Plasma cell myeloma
     Dosage: 4 MILLIGRAM, 1/WEEK
     Route: 048
     Dates: start: 20210824
  2. CYCLOPHOSPHAMIDE [Suspect]
     Active Substance: CYCLOPHOSPHAMIDE
     Indication: Plasma cell myeloma
     Dosage: 0.4 GRAM
     Route: 042
     Dates: start: 20210824, end: 20210824
  3. DEXAMETHASONE SODIUM PHOSPHATE [Concomitant]
     Active Substance: DEXAMETHASONE SODIUM PHOSPHATE
     Indication: Plasma cell myeloma
     Dosage: 20 MILLIGRAM, 1/WEEK
     Route: 042
     Dates: start: 20210822
  4. OMEPRAZOLE SODIUM [Concomitant]
     Active Substance: OMEPRAZOLE SODIUM
     Indication: Gastrointestinal disorder prophylaxis
     Dosage: 40 MILLIGRAM, QD
     Route: 042
     Dates: start: 20210824, end: 20210827
  5. OMEPRAZOLE SODIUM [Concomitant]
     Active Substance: OMEPRAZOLE SODIUM
     Dosage: 40 MILLIGRAM, QD
     Route: 042
     Dates: start: 20210831, end: 20210910
  6. OMEPRAZOLE SODIUM [Concomitant]
     Active Substance: OMEPRAZOLE SODIUM
     Dosage: 40 MILLIGRAM, 1/WEEK
     Route: 042
     Dates: start: 20210925, end: 20211002
  7. OMEPRAZOLE SODIUM [Concomitant]
     Active Substance: OMEPRAZOLE SODIUM
     Dosage: 40 MILLIGRAM, QD
     Route: 042
     Dates: start: 20210831, end: 20210831
  8. DARATUMUMAB [Concomitant]
     Active Substance: DARATUMUMAB
     Indication: Plasma cell myeloma
     Dosage: 100 MILLIGRAM
     Route: 065
     Dates: start: 20210908, end: 20210908
  9. DARATUMUMAB [Concomitant]
     Active Substance: DARATUMUMAB
     Dosage: 100 MILLILITER
     Route: 065
     Dates: start: 20210924, end: 20210924
  10. METHYLPREDNISOLONE SODIUM SUCCINATE [Concomitant]
     Active Substance: METHYLPREDNISOLONE SODIUM SUCCINATE
     Indication: Prophylaxis
     Dosage: 80 MILLIGRAM
     Route: 065
     Dates: start: 20210908, end: 20210908
  11. METHYLPREDNISOLONE SODIUM SUCCINATE [Concomitant]
     Active Substance: METHYLPREDNISOLONE SODIUM SUCCINATE
     Dosage: 80 MILLIGRAM
     Route: 065
     Dates: start: 20210924, end: 20210924
  12. MONTMORILLONITE [Concomitant]
     Active Substance: MONTMORILLONITE
     Indication: Product used for unknown indication
     Dosage: 6 GRAM
     Route: 048
     Dates: start: 20210908, end: 20210908
  13. TIOPRONIN [Concomitant]
     Active Substance: TIOPRONIN
     Indication: Hepatobiliary disorder prophylaxis
     Dosage: 0.2 GRAM, QD
     Route: 042
     Dates: start: 20210909, end: 20210910
  14. TIOPRONIN [Concomitant]
     Active Substance: TIOPRONIN
     Dosage: 0.2 GRAM
     Route: 042
     Dates: start: 20210909, end: 20210909
  15. GRANISETRON HYDROCHLORIDE AND SODIUM CHLORIDE [Concomitant]
     Indication: Vomiting
     Dosage: 3 MILLIGRAM
     Route: 042
     Dates: start: 20210824, end: 20210824

REACTIONS (3)
  - Death [Fatal]
  - Herpes zoster [Unknown]
  - Off label use [Recovered/Resolved]

NARRATIVE: CASE EVENT DATE: 20210831
